FAERS Safety Report 9090453 (Version 1)
Quarter: 2013Q1

REPORT INFORMATION
  Report Type: Spontaneous
  Country: US (occurrence: US)
  Receive Date: 20130201
  Receipt Date: 20130201
  Transmission Date: 20140127
  Serious: Yes (Other)
  Sender: FDA-Public Use
  Company Number: US-MYLANLABS-2013S1001842

PATIENT
  Sex: Male

DRUGS (4)
  1. AMNESTEEM [Suspect]
     Route: 048
     Dates: start: 200409, end: 200504
  2. ACCUTANE [Suspect]
     Route: 048
     Dates: start: 200409, end: 200504
  3. ROACCUTANE [Suspect]
     Route: 048
     Dates: start: 200409, end: 200504
  4. CLARAVIS [Suspect]
     Route: 048
     Dates: start: 200409, end: 200504

REACTIONS (5)
  - Inflammatory bowel disease [Not Recovered/Not Resolved]
  - Irritable bowel syndrome [Not Recovered/Not Resolved]
  - Renal disorder [Not Recovered/Not Resolved]
  - Diverticulitis [Not Recovered/Not Resolved]
  - Gastrointestinal disorder [Not Recovered/Not Resolved]
